FAERS Safety Report 9021659 (Version 1)
Quarter: 2013Q1

REPORT INFORMATION
  Report Type: Spontaneous
  Country: US (occurrence: US)
  Receive Date: 20130119
  Receipt Date: 20130119
  Transmission Date: 20140127
  Serious: No
  Sender: FDA-Public Use
  Company Number: US-ALLERGAN-1201174US

PATIENT
  Sex: Female

DRUGS (7)
  1. BOTOX? [Suspect]
     Indication: MIGRAINE
     Dosage: 155 UNITS, SINGLE
     Route: 030
     Dates: start: 20111118, end: 20111118
  2. KEPPRA [Concomitant]
     Indication: CONVULSION
     Dosage: 500 MG, QD
     Route: 048
  3. INDERAL                            /00030001/ [Concomitant]
     Indication: HYPERTENSION
     Dosage: 120 MG, QD
     Route: 048
  4. CYMBALTA [Concomitant]
     Indication: PRODUCT USED FOR UNKNOWN INDICATION
     Dosage: 60 MG, QD
     Route: 048
  5. ALBUTERAL [Concomitant]
     Indication: ASTHMA
     Dosage: UNK
  6. METFORMIN [Concomitant]
     Indication: DIABETES MELLITUS
     Dosage: 500 MG, TID
     Route: 048
  7. SINGULAIR                          /01362601/ [Concomitant]
     Indication: ASTHMA
     Dosage: 10 MG, QD
     Route: 048

REACTIONS (2)
  - Therapeutic response decreased [Unknown]
  - Headache [Unknown]
